FAERS Safety Report 11716627 (Version 1)
Quarter: 2015Q4

REPORT INFORMATION
  Report Type: Spontaneous
  Country: CH (occurrence: CH)
  Receive Date: 20151109
  Receipt Date: 20151109
  Transmission Date: 20160304
  Serious: Yes (Hospitalization, Other)
  Sender: FDA-Public Use
  Company Number: CH-BAYER-2015-455189

PATIENT
  Age: 7 Year
  Sex: Male

DRUGS (9)
  1. ESIDREX [Suspect]
     Active Substance: HYDROCHLOROTHIAZIDE
     Indication: HYPERTENSION
     Dosage: 3 MG, BID
     Route: 048
  2. ENALAPRIL [Concomitant]
     Active Substance: ENALAPRIL
     Indication: HYPERTENSION
     Dosage: 1.25 MG, QD
     Route: 048
  3. DEPAKINE [Suspect]
     Active Substance: VALPROATE SODIUM
     Dosage: 2 ML, BID
  4. ATROVENT [Concomitant]
     Active Substance: IPRATROPIUM BROMIDE
  5. SOLMUCOL [Concomitant]
     Route: 048
  6. NOPIL [Suspect]
     Active Substance: SULFAMETHOXAZOLE\TRIMETHOPRIM
     Dosage: 7 ML, BID
     Route: 048
     Dates: start: 20150710, end: 20150717
  7. CIPROXIN [Suspect]
     Active Substance: CIPROFLOXACIN
     Dosage: 4.5 ML, BID
     Route: 048
     Dates: start: 20150710, end: 20150717
  8. SALBUTAMOL [Concomitant]
     Active Substance: ALBUTEROL
  9. CARNITENE [LEVOCARNITINE HYDROCHLORIDE] [Concomitant]
     Route: 048

REACTIONS (7)
  - Blood electrolytes decreased [Recovered/Resolved]
  - Blood calcium decreased [Recovered/Resolved]
  - Eye movement disorder [Recovered/Resolved]
  - Loss of consciousness [Recovered/Resolved]
  - Blood potassium decreased [Recovered/Resolved]
  - Blood sodium decreased [Recovered/Resolved]
  - Blood chloride decreased [Recovered/Resolved]

NARRATIVE: CASE EVENT DATE: 20150716
